FAERS Safety Report 23090153 (Version 3)
Quarter: 2023Q4

REPORT INFORMATION
  Report Type: Spontaneous
  Country: US (occurrence: US)
  Receive Date: 20231020
  Receipt Date: 20231120
  Transmission Date: 20240109
  Serious: No
  Sender: FDA-Public Use
  Company Number: US-VERTEX PHARMACEUTICALS-2023-011050

PATIENT
  Sex: Female

DRUGS (11)
  1. TRIKAFTA [Suspect]
     Active Substance: ELEXACAFTOR\IVACAFTOR\TEZACAFTOR
     Indication: Cystic fibrosis
     Dosage: 1 WHITE AND BLUE PACK AM, 1 WHITE AND GREEN PACK PM
     Route: 048
     Dates: start: 20230531, end: 20230705
  2. TRIKAFTA [Suspect]
     Active Substance: ELEXACAFTOR\IVACAFTOR\TEZACAFTOR
     Dosage: 1/2 BLUE PCKT IN AM AND GREEN PCKT IN PM
     Route: 048
     Dates: start: 202308, end: 20230831
  3. ALBUTEROL SULFATE [Concomitant]
     Active Substance: ALBUTEROL SULFATE
  4. FLOVENT [Concomitant]
     Active Substance: FLUTICASONE PROPIONATE
  5. ZENPEP [Concomitant]
     Active Substance: PANCRELIPASE AMYLASE\PANCRELIPASE LIPASE\PANCRELIPASE PROTEASE
  6. MINERALS\VITAMINS [Concomitant]
     Active Substance: MINERALS\VITAMINS
  7. CETIRIZINE HCL [Concomitant]
     Active Substance: CETIRIZINE HYDROCHLORIDE
  8. MIRALAX [Concomitant]
     Active Substance: POLYETHYLENE GLYCOL 3350
  9. TOBRAMYCIN [Concomitant]
     Active Substance: TOBRAMYCIN
  10. PULMOZYME [Concomitant]
     Active Substance: DORNASE ALFA
  11. KITABIS PAK [Concomitant]
     Active Substance: TOBRAMYCIN

REACTIONS (6)
  - Behaviour disorder [Unknown]
  - Aggression [Recovering/Resolving]
  - Pseudomonas test positive [Unknown]
  - Mental disorder [Unknown]
  - Cough [Unknown]
  - Depressed mood [Unknown]

NARRATIVE: CASE EVENT DATE: 20230101
